FAERS Safety Report 9624818 (Version 1)
Quarter: 2013Q4

REPORT INFORMATION
  Report Type: Spontaneous
  Country: US (occurrence: US)
  Receive Date: 20131015
  Receipt Date: 20131015
  Transmission Date: 20140711
  Serious: Yes (Hospitalization)
  Sender: FDA-Public Use
  Company Number: US-B.I. PHARMACEUTICALS,INC./RIDGEFIELD-2013-BI-32254BP

PATIENT
  Age: 61 Year
  Sex: Female
  Weight: 73 kg

DRUGS (11)
  1. SPIRIVA [Suspect]
     Indication: CHRONIC OBSTRUCTIVE PULMONARY DISEASE
     Dosage: 18 MCG
     Route: 055
     Dates: start: 2004
  2. HYDROCODONE [Concomitant]
     Indication: ARTHRITIS
     Dosage: 7.5 MG
     Route: 048
     Dates: start: 2009
  3. PLETAL [Concomitant]
     Dosage: 200 MG
     Route: 048
     Dates: start: 201307
  4. MOBIC [Concomitant]
     Indication: ARTHRITIS
     Dosage: 15 MG
     Route: 048
     Dates: start: 201304
  5. CYCLOBENZAPRINE [Concomitant]
     Dosage: 20 MG
     Route: 048
     Dates: start: 2009
  6. TRAZADONE [Concomitant]
     Indication: INSOMNIA
     Dosage: 50 MG
     Route: 048
     Dates: start: 2009
  7. NORVASC [Concomitant]
     Indication: HYPERTENSION
     Dosage: 10 MG
     Route: 048
     Dates: start: 2009
  8. NEXIUM [Concomitant]
     Indication: GASTROOESOPHAGEAL REFLUX DISEASE
     Dosage: 40 MG
     Route: 048
     Dates: start: 201304
  9. ACCUPRIL [Concomitant]
     Indication: HYPERTENSION
     Dosage: 40 MG
     Route: 048
     Dates: start: 2004
  10. PROAIR [Concomitant]
     Indication: CHRONIC OBSTRUCTIVE PULMONARY DISEASE
     Dates: start: 2004
  11. ZESTRIL [Concomitant]
     Indication: HYPERTENSION
     Dosage: 40 MG
     Route: 048
     Dates: start: 2004

REACTIONS (4)
  - Blood cholesterol [Not Recovered/Not Resolved]
  - Abnormal loss of weight [Not Recovered/Not Resolved]
  - Decreased appetite [Not Recovered/Not Resolved]
  - Mass [Not Recovered/Not Resolved]
